FAERS Safety Report 9353681 (Version 1)
Quarter: 2013Q2

REPORT INFORMATION
  Report Type: Spontaneous
  Country: US (occurrence: None)
  Receive Date: 20130612
  Receipt Date: 20130612
  Transmission Date: 20140414
  Serious: Yes (Other)
  Sender: FDA-Public Use
  Company Number: 1728068

PATIENT
  Age: 90 Year
  Sex: Female

DRUGS (13)
  1. GENTAMICIN SULFATE [Suspect]
     Indication: PRODUCT USED FOR UNKNOWN INDICATION
     Route: 030
  2. (POTASSIUM) [Concomitant]
  3. (DOCUSATE) [Concomitant]
  4. (IRON) [Concomitant]
  5. (ASA) [Concomitant]
  6. (MULTIVITAMINS, OTHER COMBINATIONS) [Concomitant]
  7. (DOXYCYCLINE) [Concomitant]
  8. (CIPRO) [Concomitant]
  9. (AMLODIPINE) [Concomitant]
  10. CITALOPRAM [Concomitant]
  11. (APAP) [Concomitant]
  12. (TRAMADOL) [Concomitant]
  13. (PANTOPRAZOLE) [Concomitant]

REACTIONS (1)
  - Thrombophlebitis [None]
